FAERS Safety Report 8134948-1 (Version None)
Quarter: 2012Q1

REPORT INFORMATION
  Report Type: 
  Country: None (occurrence: None)
  Receive Date: 20120214
  Receipt Date: 20120206
  Transmission Date: 20120608
  Serious: Yes (Other)
  Sender: FDA-Public Use
  Company Number: US-RB-034583-12

PATIENT
  Age: 38 Year
  Sex: Female

DRUGS (1)
  1. MUCINEX DM [Suspect]
     Indication: PRODUCT USED FOR UNKNOWN INDICATION
     Route: 048
     Dates: start: 20120121

REACTIONS (7)
  - HYPOPNOEA [None]
  - HEART RATE INCREASED [None]
  - ABDOMINAL PAIN UPPER [None]
  - COLD SWEAT [None]
  - LOSS OF CONSCIOUSNESS [None]
  - SOMNOLENCE [None]
  - DIARRHOEA [None]
